FAERS Safety Report 21110664 (Version 3)
Quarter: 2022Q3

REPORT INFORMATION
  Report Type: Report from Study
  Country: US (occurrence: None)
  Receive Date: 20220721
  Receipt Date: 20220919
  Transmission Date: 20221026
  Serious: Yes (Hospitalization, Other)
  Sender: FDA-Public Use
  Company Number: US-ROCHE-3138014

PATIENT
  Age: 79 Year
  Sex: Male
  Weight: 145.5 kg

DRUGS (11)
  1. ATEZOLIZUMAB [Suspect]
     Active Substance: ATEZOLIZUMAB
     Indication: Bladder cancer
     Dosage: ON DAY 1?START DATE OF COURSE ASSOCIATED WITH REPORT 13/JUN/2022
     Route: 042
     Dates: start: 20211227
  2. CISPLATIN [Suspect]
     Active Substance: CISPLATIN
     Indication: Bladder cancer
     Dosage: WEEKLY FOR SIX WEEKS
     Route: 042
     Dates: start: 20220131
  3. ASPIRIN [Concomitant]
     Active Substance: ASPIRIN
  4. CRANBERRY JUICE CONCENTRATE [Concomitant]
  5. FISH OIL [Concomitant]
     Active Substance: FISH OIL
  6. ACETAMINOPHEN\HYDROCODONE [Concomitant]
     Active Substance: ACETAMINOPHEN\HYDROCODONE
  7. IBUPROFEN [Concomitant]
     Active Substance: IBUPROFEN
  8. PUMPKIN SEED OIL [Concomitant]
  9. LEVOPHED [Concomitant]
     Active Substance: NOREPINEPHRINE BITARTRATE
  10. CEFEPIME [Concomitant]
     Active Substance: CEFEPIME HYDROCHLORIDE
  11. VANCOMYCIN [Concomitant]
     Active Substance: VANCOMYCIN

REACTIONS (8)
  - Sepsis [Recovered/Resolved]
  - Chronic kidney disease [Recovered/Resolved]
  - Urinary tract infection [Recovered/Resolved]
  - Blood creatinine increased [Recovered/Resolved]
  - Muscular weakness [Not Recovered/Not Resolved]
  - Hypotension [Recovered/Resolved]
  - Lymphocyte count decreased [Recovered/Resolved]
  - Dehydration [Recovered/Resolved]

NARRATIVE: CASE EVENT DATE: 20220626
